FAERS Safety Report 6933301-3 (Version None)
Quarter: 2010Q3

REPORT INFORMATION
  Report Type: 
  Country: None (occurrence: None)
  Receive Date: 20100820
  Receipt Date: 20100416
  Transmission Date: 20110219
  Serious: Yes (Hospitalization)
  Sender: FDA-Public Use
  Company Number: US-RANBAXY-2010US-33688

PATIENT

DRUGS (19)
  1. GANCICLOVIR [Suspect]
     Indication: ANTIVIRAL PROPHYLAXIS
     Dosage: 500 MG, TID
     Route: 048
     Dates: start: 20070809, end: 20070821
  2. ACYCLOVIR SODIUM [Suspect]
     Indication: ANTIVIRAL PROPHYLAXIS
     Dosage: 400 MG, BID
     Route: 048
     Dates: start: 20070809, end: 20070821
  3. MARIBAVIR (PLACEBO) [Suspect]
     Indication: ANTIVIRAL PROPHYLAXIS
     Dosage: 100 MG, BID
     Route: 048
     Dates: start: 20070809, end: 20070821
  4. NORVASC [Concomitant]
     Indication: BLOOD PRESSURE
     Route: 065
  5. CELLCEPT [Concomitant]
     Indication: PROPHYLAXIS AGAINST TRANSPLANT REJECTION
     Route: 065
  6. PROGRAF [Concomitant]
     Indication: PROPHYLAXIS AGAINST TRANSPLANT REJECTION
     Route: 065
  7. PREDNISONE [Concomitant]
     Indication: PROPHYLAXIS AGAINST TRANSPLANT REJECTION
     Route: 065
  8. DIFLUCAN [Concomitant]
     Indication: ANTIFUNGAL PROPHYLAXIS
     Route: 065
  9. SOLU-MEDROL [Concomitant]
     Indication: PROPHYLAXIS AGAINST TRANSPLANT REJECTION
     Route: 065
  10. ZANTAC [Concomitant]
     Indication: GASTROOESOPHAGEAL REFLUX PROPHYLAXIS
     Route: 065
  11. CLONIDINE [Concomitant]
     Indication: HYPERTENSION
     Route: 065
  12. BACTRIM [Concomitant]
     Indication: INFECTION PROPHYLAXIS
     Route: 065
  13. NYSTATIN [Concomitant]
     Indication: INFECTION PROPHYLAXIS
     Route: 065
  14. INSULIN [Concomitant]
     Indication: HYPERGLYCAEMIA
     Route: 065
  15. CIPROFLOXACIN [Concomitant]
     Indication: INFECTION PROPHYLAXIS
     Route: 065
  16. VANCOMYCIN [Concomitant]
     Indication: INFECTION PROPHYLAXIS
     Route: 065
  17. TICARCILLIN [Concomitant]
     Indication: INFECTION PROPHYLAXIS
     Route: 065
  18. MULTI-VITAMIN [Concomitant]
     Indication: VITAMIN SUPPLEMENTATION
     Route: 065
  19. PEPCID [Concomitant]
     Indication: PRODUCT USED FOR UNKNOWN INDICATION
     Route: 065

REACTIONS (7)
  - CHOLANGITIS [None]
  - CYTOMEGALOVIRUS INFECTION [None]
  - DRUG INEFFECTIVE [None]
  - HAEMOTHORAX [None]
  - HEPATIC ENZYME INCREASED [None]
  - HYDROTHORAX [None]
  - LIVER TRANSPLANT REJECTION [None]
